FAERS Safety Report 8254827-9 (Version None)
Quarter: 2012Q2

REPORT INFORMATION
  Report Type: 
  Country: None (occurrence: None)
  Receive Date: 20120403
  Receipt Date: 20120328
  Transmission Date: 20120825
  Serious: Yes (Hospitalization, Other)
  Sender: FDA-Public Use
  Company Number: PHEH2012US005407

PATIENT
  Sex: Male

DRUGS (1)
  1. EXJADE [Suspect]
     Indication: MYELODYSPLASTIC SYNDROME
     Dosage: 1500 MG DAILY
     Route: 048
     Dates: start: 20111201

REACTIONS (3)
  - MALAISE [None]
  - ARTHROPOD BITE [None]
  - ANAEMIA [None]
